FAERS Safety Report 5807515-X (Version None)
Quarter: 2008Q3

REPORT INFORMATION
  Report Type: 
  Country: None (occurrence: None)
  Receive Date: 20080711
  Receipt Date: 20080701
  Transmission Date: 20090109
  Serious: Yes (Life-Threatening, Other)
  Sender: FDA-Public Use
  Company Number: KR-JNJFOC-20080700990

PATIENT

DRUGS (6)
  1. REOPRO [Suspect]
     Route: 042
  2. REOPRO [Suspect]
     Indication: PERCUTANEOUS CORONARY INTERVENTION
     Route: 042
  3. ASPIRIN [Concomitant]
  4. ASPIRIN [Concomitant]
  5. CLOPIDOGREL [Concomitant]
  6. CLOPIDOGREL [Concomitant]

REACTIONS (2)
  - CARDIAC TAMPONADE [None]
  - HAEMORRHAGE [None]
